FAERS Safety Report 6171612-2 (Version None)
Quarter: 2009Q2

REPORT INFORMATION
  Report Type: 
  Country: None (occurrence: None)
  Receive Date: 20090429
  Receipt Date: 20090420
  Transmission Date: 20091009
  Serious: Yes (Other)
  Sender: FDA-Public Use
  Company Number: GB-AVENTIS-200912199EU

PATIENT
  Age: 68 Year
  Sex: Male

DRUGS (10)
  1. FUROSEMIDE [Suspect]
  2. FUROSEMIDE [Suspect]
  3. LANSOPRAZOLE [Suspect]
  4. ACIPIMOX [Suspect]
  5. AMIODARONE [Suspect]
  6. ASPIRIN [Suspect]
  7. BISOPROLOL FUMARATE [Suspect]
  8. DIGOXIN [Suspect]
  9. EZETIMIBE [Suspect]
     Route: 048
  10. PERINDOPRIL [Suspect]

REACTIONS (12)
  - ATRIAL FIBRILLATION [None]
  - CARDIAC MURMUR [None]
  - DIZZINESS [None]
  - DRUG INEFFECTIVE [None]
  - DYSPNOEA [None]
  - FATIGUE [None]
  - FEELING ABNORMAL [None]
  - LEFT VENTRICULAR DYSFUNCTION [None]
  - OEDEMA [None]
  - PARAESTHESIA [None]
  - VENOUS PRESSURE JUGULAR INCREASED [None]
  - VENTRICULAR TACHYCARDIA [None]
